FAERS Safety Report 16378263 (Version 1)
Quarter: 2019Q2

REPORT INFORMATION
  Report Type: Spontaneous
  Country: US (occurrence: US)
  Receive Date: 20190531
  Receipt Date: 20190531
  Transmission Date: 20190711
  Serious: Yes (Hospitalization, Other)
  Sender: FDA-Public Use
  Company Number: US-ELI_LILLY_AND_COMPANY-US201905012717

PATIENT
  Sex: Female

DRUGS (1)
  1. HUMULIN R U-500 [Suspect]
     Active Substance: INSULIN HUMAN
     Indication: TYPE 2 DIABETES MELLITUS
     Dosage: UNK UNK, TID (SLIDING SCALE)
     Route: 058

REACTIONS (6)
  - Dementia [Not Recovered/Not Resolved]
  - Breast cancer female [Recovered/Resolved]
  - Hypertension [Recovering/Resolving]
  - Chronic kidney disease [Recovering/Resolving]
  - Cardiac failure congestive [Recovering/Resolving]
  - Peripheral swelling [Recovering/Resolving]
